FAERS Safety Report 10487792 (Version 1)
Quarter: 2014Q4

REPORT INFORMATION
  Report Type: Spontaneous
  Country: US (occurrence: US)
  Receive Date: 20141001
  Receipt Date: 20141001
  Transmission Date: 20150528
  Serious: Yes (Other)
  Sender: FDA-Public Use
  Company Number: US-BAYER-2014-144320

PATIENT
  Age: 63 Year
  Sex: Female
  Weight: 48 kg

DRUGS (1)
  1. ALKA-SELTZER PLUS COLD AND COUGH FORMULA [Suspect]
     Active Substance: ACETAMINOPHEN\CHLORPHENIRAMINE MALEATE\DEXTROMETHORPHAN HYDROBROMIDE\PHENYLEPHRINE HYDROCHLORIDE
     Indication: NASOPHARYNGITIS
     Dosage: 2 DF, PRN
     Route: 048
     Dates: start: 20140923

REACTIONS (2)
  - Wrong technique in drug usage process [None]
  - Choking [Recovered/Resolved]

NARRATIVE: CASE EVENT DATE: 20140923
